FAERS Safety Report 7398034-0 (Version None)
Quarter: 2011Q2

REPORT INFORMATION
  Report Type: 
  Country: None (occurrence: None)
  Receive Date: 20110406
  Receipt Date: 20110331
  Transmission Date: 20111010
  Serious: No
  Sender: FDA-Public Use
  Company Number: US-PFIZER INC-2011072403

PATIENT
  Sex: Female
  Weight: 72.562 kg

DRUGS (1)
  1. XANAX [Suspect]
     Dosage: 1 MG, DAILY
     Route: 048
     Dates: start: 20110329, end: 20110330

REACTIONS (2)
  - HEADACHE [None]
  - SWOLLEN TONGUE [None]
